FAERS Safety Report 17889384 (Version 1)
Quarter: 2020Q2

REPORT INFORMATION
  Report Type: Spontaneous
  Country: US (occurrence: US)
  Receive Date: 20200612
  Receipt Date: 20200612
  Transmission Date: 20200714
  Serious: No
  Sender: FDA-Public Use
  Company Number: US-PFIZER INC-2019132873

PATIENT
  Age: 68 Year
  Sex: Male
  Weight: 122.47 kg

DRUGS (2)
  1. CHANTIX [Suspect]
     Active Substance: VARENICLINE TARTRATE
     Indication: NICOTINE DEPENDENCE
     Dosage: 1 MG, DAILY (TAKE 1 TABLET (1MG) BY MOUTH DAILY )
     Route: 048
     Dates: start: 20190325
  2. CHANTIX [Suspect]
     Active Substance: VARENICLINE TARTRATE
     Indication: SMOKING CESSATION THERAPY
     Dosage: 1 MG, 2X/DAY
     Route: 048
     Dates: start: 2020, end: 202005

REACTIONS (2)
  - Expired product administered [Unknown]
  - Panic reaction [Unknown]
